FAERS Safety Report 4577734-1 (Version None)
Quarter: 2005Q1

REPORT INFORMATION
  Report Type: 
  Country: None (occurrence: None)
  Receive Date: 20050131
  Receipt Date: 20050118
  Transmission Date: 20050727
  Serious: Yes (Hospitalization, Other)
  Sender: FDA-Public Use
  Company Number: 200510040BFR

PATIENT
  Age: 6 Year
  Sex: Male

DRUGS (1)
  1. KOGENATE [Suspect]
     Indication: HAEMOPHILIA
     Dosage: INTRAVENOUS
     Route: 042
     Dates: start: 20041125

REACTIONS (4)
  - DISEASE RECURRENCE [None]
  - FACTOR VIII INHIBITION [None]
  - HAEMARTHROSIS [None]
  - HAEMATOMA [None]
